FAERS Safety Report 7201749-8 (Version None)
Quarter: 2010Q4

REPORT INFORMATION
  Report Type: 
  Country: None (occurrence: None)
  Receive Date: 20101229
  Receipt Date: 20101221
  Transmission Date: 20110411
  Serious: Yes (Hospitalization)
  Sender: FDA-Public Use
  Company Number: DE-ROCHE-750012

PATIENT
  Sex: Female
  Weight: 78 kg

DRUGS (2)
  1. TOCILIZUMAB [Suspect]
     Dosage: DOSE: 8 MG/KG, DRUG DISCONTINUED; FORM INFUSION
     Route: 065
     Dates: start: 20090920
  2. IBUPROFEN [Concomitant]
     Route: 048

REACTIONS (4)
  - COLITIS [None]
  - PULMONARY EMBOLISM [None]
  - PULMONARY INFARCTION [None]
  - SEPSIS [None]
